FAERS Safety Report 5220249-8 (Version None)
Quarter: 2007Q1

REPORT INFORMATION
  Report Type: 
  Country: None (occurrence: None)
  Receive Date: 20061121
  Receipt Date: 20060804
  Transmission Date: 20070707
  Serious: No
  Sender: FDA-Public Use
  Company Number: TPA2006A00774

PATIENT
  Age: 44 Year
  Sex: Male

DRUGS (6)
  1. ROZEREM [Suspect]
     Indication: INITIAL INSOMNIA
     Dosage: 8 MG, PER ORAL
     Route: 048
     Dates: start: 20060119, end: 20060406
  2. ABILIFY (ARIPIPRAZOLE) (10 MILLIGRAM) [Concomitant]
  3. PROVIGIL [Concomitant]
  4. STRATTERA [Concomitant]
  5. WELLBUTRIN XL [Concomitant]
  6. KLONOPIN (CLONAZEPAM) (0.5 MILLIGRAM, TABLETS) [Concomitant]

REACTIONS (1)
  - PARAESTHESIA [None]
